FAERS Safety Report 9402145 (Version 1)
Quarter: 2013Q3

REPORT INFORMATION
  Report Type: Spontaneous
  Country: US (occurrence: None)
  Receive Date: 20130712
  Receipt Date: 20130712
  Transmission Date: 20140515
  Serious: No
  Sender: FDA-Public Use
  Company Number: None

PATIENT
  Age: 56 Year
  Sex: Female
  Weight: 62.7 kg

DRUGS (2)
  1. 5-FLUOROURACIL (5-FU) [Suspect]
     Dosage: CYCLE 5
  2. OXALIPLATIN (ELOXATIN) [Suspect]
     Dosage: CYCLE 5

REACTIONS (2)
  - Aspartate aminotransferase increased [None]
  - Alanine aminotransferase increased [None]
